FAERS Safety Report 21611877 (Version 2)
Quarter: 2022Q4

REPORT INFORMATION
  Report Type: Spontaneous
  Country: US (occurrence: US)
  Receive Date: 20221117
  Receipt Date: 20221122
  Transmission Date: 20230112
  Serious: Yes (Other)
  Sender: FDA-Public Use
  Company Number: US-BRISTOL-MYERS SQUIBB COMPANY-2022-139127

PATIENT
  Age: 87 Year
  Sex: Female
  Weight: 54.8 kg

DRUGS (1)
  1. REVLIMID [Suspect]
     Active Substance: LENALIDOMIDE
     Indication: Myelodysplastic syndrome
     Dosage: 3 W 1 W OFF (21D ON 7D OFF)
     Route: 048

REACTIONS (4)
  - Leukopenia [Unknown]
  - Anaemia [Unknown]
  - Muscle spasms [Unknown]
  - Fatigue [Unknown]
